FAERS Safety Report 6765534-3 (Version None)
Quarter: 2010Q2

REPORT INFORMATION
  Report Type: 
  Country: None (occurrence: None)
  Receive Date: 20100611
  Receipt Date: 20100607
  Transmission Date: 20101027
  Serious: Yes (Other)
  Sender: FDA-Public Use
  Company Number: US-SHIRE-SPV1-2010-00236

PATIENT

DRUGS (8)
  1. BLINDED 503 (GUANFACINE HYDROCHLORIDE) [Suspect]
     Indication: ATTENTION DEFICIT/HYPERACTIVITY DISORDER
     Dosage: 1 MG, 1X/DAY:QD
     Route: 048
     Dates: start: 20100114, end: 20100101
  2. BLINDED PLACEBO [Suspect]
     Indication: ATTENTION DEFICIT/HYPERACTIVITY DISORDER
     Dosage: 1 MG, 1X/DAY:QD
     Route: 048
     Dates: start: 20100114, end: 20100101
  3. BLINDED 503 (GUANFACINE HYDROCHLORIDE) [Suspect]
     Dosage: 2 MG, 1X/DAY:QD
     Route: 048
     Dates: start: 20100101, end: 20100101
  4. BLINDED PLACEBO [Suspect]
     Dosage: 2 MG, 1X/DAY:QD
     Route: 048
     Dates: start: 20100101, end: 20100101
  5. BLINDED 503 (GUANFACINE HYDROCHLORIDE) [Suspect]
     Dosage: 3 MG, 1X/DAY:QD
     Route: 048
     Dates: start: 20100202, end: 20100211
  6. BLINDED PLACEBO [Suspect]
     Dosage: 3 MG, 1X/DAY:QD
     Route: 048
     Dates: start: 20100202, end: 20100211
  7. BLINDED 503 (GUANFACINE HYDROCHLORIDE) [Suspect]
     Dosage: UNK MG, 1X/DAY:QD
     Route: 048
     Dates: start: 20100212
  8. BLINDED PLACEBO [Suspect]
     Dosage: UNK MG, 1X/DAY:QD
     Route: 048
     Dates: start: 20100212

REACTIONS (1)
  - SYNCOPE [None]
